FAERS Safety Report 23604973 (Version 1)
Quarter: 2024Q1

REPORT INFORMATION
  Report Type: Other
  Country: IN (occurrence: IN)
  Receive Date: 20240307
  Receipt Date: 20240307
  Transmission Date: 20240410
  Serious: Yes (Life-Threatening, Other)
  Sender: FDA-Public Use
  Company Number: IN-B.Braun Medical Inc.-2154100

PATIENT
  Age: 46 Year
  Sex: Female

DRUGS (9)
  1. EPINEPHRINE\LIDOCAINE HYDROCHLORIDE [Suspect]
     Active Substance: EPINEPHRINE\LIDOCAINE HYDROCHLORIDE
  2. DESFLURANE [Suspect]
     Active Substance: DESFLURANE
  3. NITROUS OXIDE [Concomitant]
     Active Substance: NITROUS OXIDE
  4. VECURONIUM [Concomitant]
     Active Substance: VECURONIUM BROMIDE
  5. THIOPENTAL SODIUM [Concomitant]
     Active Substance: THIOPENTAL SODIUM
  6. FENTANYL [Concomitant]
     Active Substance: FENTANYL\FENTANYL CITRATE
  7. SODIUM CHLORIDE [Concomitant]
     Active Substance: SODIUM CHLORIDE
  8. DEXAMETHASONE [Concomitant]
     Active Substance: DEXAMETHASONE
  9. Xylometazoline nasal drops [Concomitant]

REACTIONS (4)
  - Ventricular tachycardia [Unknown]
  - Drug interaction [Unknown]
  - Off label use [Unknown]
  - Hypertension [Unknown]
